FAERS Safety Report 8960499 (Version 1)
Quarter: 2012Q4

REPORT INFORMATION
  Report Type: Spontaneous
  Country: GB (occurrence: None)
  Receive Date: 20121203
  Receipt Date: 20121203
  Transmission Date: 20130627
  Serious: Yes (Other)
  Sender: FDA-Public Use
  Company Number: 2012R1-62298

PATIENT
  Age: 74 Year
  Sex: Male
  Weight: 39.05 kg

DRUGS (3)
  1. AMLODIPINE [Suspect]
     Indication: BLOOD PRESSURE HIGH
     Route: 048
     Dates: start: 20090114
  2. PRAVASTATIN [Suspect]
     Indication: BLOOD CHOLESTEROL INCREASED
     Dates: start: 20121011, end: 20121017
  3. QUININE SULPHATE [Suspect]
     Indication: MUSCLE SPASMS
     Route: 048
     Dates: end: 20121018

REACTIONS (3)
  - Neck pain [None]
  - Product substitution issue [None]
  - Joint swelling [None]
